FAERS Safety Report 7601867-6 (Version None)
Quarter: 2011Q3

REPORT INFORMATION
  Report Type: 
  Country: None (occurrence: None)
  Receive Date: 20110711
  Receipt Date: 20110603
  Transmission Date: 20111222
  Serious: No
  Sender: FDA-Public Use
  Company Number: US-BAYER-2011-048773

PATIENT
  Age: 89 Year
  Sex: Female
  Weight: 68 kg

DRUGS (4)
  1. AGGRENOX [Concomitant]
  2. ALEVE (CAPLET) [Suspect]
     Indication: MYALGIA
     Dosage: 2 DF, QD
     Route: 048
     Dates: start: 20110526, end: 20110603
  3. ZOCOR [Concomitant]
  4. MECLIZINE [Concomitant]

REACTIONS (1)
  - MYALGIA [None]
